FAERS Safety Report 11988146 (Version 1)
Quarter: 2016Q1

REPORT INFORMATION
  Report Type: Spontaneous
  Country: US (occurrence: None)
  Receive Date: 20160201
  Receipt Date: 20160201
  Transmission Date: 20160526
  Serious: Yes (Other)
  Sender: FDA-Public Use
  Company Number: None

PATIENT
  Age: 56 Year
  Sex: Female
  Weight: 99.79 kg

DRUGS (9)
  1. CLONOZAPEM [Concomitant]
  2. TOPROL XL [Concomitant]
     Active Substance: METOPROLOL SUCCINATE
  3. VITAMIN C [Concomitant]
     Active Substance: ASCORBIC ACID
  4. HYDROCHLOROTHIAZINE [Concomitant]
  5. MULTIVITAMIN [Concomitant]
     Active Substance: VITAMINS
  6. DIOVAN [Concomitant]
     Active Substance: VALSARTAN
  7. COSENTYX [Suspect]
     Active Substance: SECUKINUMAB
     Indication: PSORIASIS
     Dosage: 2 150MG DOSES, INJECTED INTO THIGH
     Dates: start: 20150619, end: 20151211
  8. PAXIL [Concomitant]
     Active Substance: PAROXETINE HYDROCHLORIDE
  9. OMEPRAZOLE. [Concomitant]
     Active Substance: OMEPRAZOLE

REACTIONS (10)
  - Dizziness [None]
  - Heart rate increased [None]
  - Fatigue [None]
  - Bronchitis [None]
  - Headache [None]
  - Upper respiratory tract infection [None]
  - Drug ineffective [None]
  - Blood pressure increased [None]
  - Respiratory distress [None]
  - Nausea [None]

NARRATIVE: CASE EVENT DATE: 20160113
